FAERS Safety Report 9996732 (Version 1)
Quarter: 2014Q1

REPORT INFORMATION
  Report Type: Spontaneous
  Country: US (occurrence: US)
  Receive Date: 20140311
  Receipt Date: 20140311
  Transmission Date: 20141002
  Serious: No
  Sender: FDA-Public Use
  Company Number: US-GLAXOSMITHKLINE-A1019036A

PATIENT
  Age: 69 Year
  Sex: Female

DRUGS (2)
  1. NICORETTE OTC 4MG [Suspect]
     Indication: EX-TOBACCO USER
     Dosage: 4MG UNKNOWN
     Route: 065
     Dates: start: 20130318, end: 20130331
  2. COMMIT NICOTINE POLACRILEX LOZENGE, 4MG [Suspect]
     Indication: PRODUCT USED FOR UNKNOWN INDICATION
     Dosage: 4MG UNKNOWN
     Route: 065

REACTIONS (2)
  - Hiccups [Unknown]
  - Drug ineffective [Unknown]
